FAERS Safety Report 9390372 (Version 2)
Quarter: 2013Q4

REPORT INFORMATION
  Report Type: Spontaneous
  Country: US (occurrence: US)
  Receive Date: 20130709
  Receipt Date: 20131009
  Transmission Date: 20140711
  Serious: Yes (Hospitalization, Other)
  Sender: FDA-Public Use
  Company Number: US-BRISTOL-MYERS SQUIBB COMPANY-19078906

PATIENT
  Age: 50 Year
  Sex: Male

DRUGS (1)
  1. BYETTA [Suspect]
     Indication: DIABETES MELLITUS

REACTIONS (5)
  - Pancreatic carcinoma [Unknown]
  - Weight decreased [Unknown]
  - Insomnia [Unknown]
  - Type 1 diabetes mellitus [Unknown]
  - Anxiety [Unknown]
